FAERS Safety Report 9152157 (Version 1)
Quarter: 2013Q1

REPORT INFORMATION
  Report Type: Spontaneous
  Country: JP (occurrence: JP)
  Receive Date: 20130308
  Receipt Date: 20130308
  Transmission Date: 20140127
  Serious: Yes (Other)
  Sender: FDA-Public Use
  Company Number: JP-TEVA-390020ISR

PATIENT
  Age: 71 Year
  Sex: Female

DRUGS (2)
  1. BETAMETHASONE [Suspect]
     Indication: UVEITIS
     Dosage: 0.1%
     Route: 061
  2. ACICLOVIR [Suspect]
     Indication: OPHTHALMIC HERPES SIMPLEX
     Route: 065

REACTIONS (1)
  - Ophthalmic herpes simplex [Recovered/Resolved]
